FAERS Safety Report 7604291-5 (Version None)
Quarter: 2011Q3

REPORT INFORMATION
  Report Type: 
  Country: None (occurrence: None)
  Receive Date: 20110712
  Receipt Date: 20110629
  Transmission Date: 20111222
  Serious: Yes (Other)
  Sender: FDA-Public Use
  Company Number: PHHY2011DE58134

PATIENT
  Age: 55 Year
  Sex: Female
  Weight: 69 kg

DRUGS (3)
  1. VALPROIC ACID [Concomitant]
     Dosage: 600 MG, DAILY
     Route: 048
  2. CLOZAPINE [Suspect]
     Dosage: 50 MG
     Route: 048
  3. FLUVOXAMINE [Concomitant]
     Dosage: 150 MG, UNK
     Route: 048

REACTIONS (4)
  - HYPOKALAEMIA [None]
  - PALPITATIONS [None]
  - ELECTROCARDIOGRAM QT PROLONGED [None]
  - TACHYCARDIA [None]
